FAERS Safety Report 21892763 (Version 1)
Quarter: 2023Q1

REPORT INFORMATION
  Report Type: Spontaneous
  Country: US (occurrence: None)
  Receive Date: 20221212
  Receipt Date: 20221212
  Transmission Date: 20230417
  Serious: Yes (Life-Threatening, Other)
  Sender: FDA-Public Use
  Company Number: None

PATIENT
  Age: 25 Year
  Sex: Female
  Weight: 70.31 kg

DRUGS (1)
  1. POLYETHYLENE GLYCOL [Suspect]
     Active Substance: POLYETHYLENE GLYCOL

REACTIONS (15)
  - Hypersensitivity [None]
  - Documented hypersensitivity to administered product [None]
  - Application site urticaria [None]
  - Tongue pruritus [None]
  - Throat irritation [None]
  - Tremor [None]
  - Heart rate increased [None]
  - Swollen tongue [None]
  - Pharyngeal swelling [None]
  - Dizziness [None]
  - Dyspnoea [None]
  - Skin reaction [None]
  - Blood pressure decreased [None]
  - Dizziness [None]
  - Dyspnoea [None]

NARRATIVE: CASE EVENT DATE: 20200211
